FAERS Safety Report 19770541 (Version 1)
Quarter: 2021Q3

REPORT INFORMATION
  Report Type: Spontaneous
  Country: US (occurrence: US)
  Receive Date: 20210827
  Receipt Date: 20210827
  Transmission Date: 20211014
  Serious: Yes (Death)
  Sender: FDA-Public Use
  Company Number: None

PATIENT
  Age: 42 Year
  Sex: Female

DRUGS (1)
  1. IRESSA [Suspect]
     Active Substance: GEFITINIB
     Indication: CERVIX CARCINOMA
     Route: 048
     Dates: start: 20210715

REACTIONS (1)
  - Death [None]

NARRATIVE: CASE EVENT DATE: 20210818
